FAERS Safety Report 9445716 (Version 3)
Quarter: 2013Q3

REPORT INFORMATION
  Report Type: Spontaneous
  Country: JP (occurrence: JP)
  Receive Date: 20130807
  Receipt Date: 20130905
  Transmission Date: 20140515
  Serious: Yes (Other)
  Sender: FDA-Public Use
  Company Number: JP-PFIZER INC-2013225359

PATIENT
  Age: 12 Year
  Sex: Female

DRUGS (2)
  1. SOLU-CORTEF [Suspect]
     Indication: FOOD ALLERGY
     Dosage: 100 MG, UNK
     Route: 042
  2. STRONG NEO-MINOPHAGEN C [Concomitant]
     Route: 042

REACTIONS (4)
  - Incorrect drug administration rate [Unknown]
  - Loss of consciousness [Recovered/Resolved]
  - Fall [Recovered/Resolved]
  - Injury [Recovered/Resolved]
